FAERS Safety Report 15305444 (Version 1)
Quarter: 2018Q3

REPORT INFORMATION
  Report Type: Spontaneous
  Country: HU (occurrence: HU)
  Receive Date: 20180822
  Receipt Date: 20180822
  Transmission Date: 20181010
  Serious: Yes (Other)
  Sender: FDA-Public Use
  Company Number: HU-TEVA-2018-HU-945361

PATIENT
  Age: 53 Year
  Sex: Male

DRUGS (8)
  1. FLUOROURACIL. [Suspect]
     Active Substance: FLUOROURACIL
     Indication: COLON CANCER
     Dosage: 800MG ON BOTH TREATMENT DAYS OF EACH TREATMENT CYCLE
     Route: 040
     Dates: start: 20180216, end: 20180713
  2. BENFOGAMMA [Concomitant]
     Indication: PROPHYLAXIS
     Route: 048
  3. ONDANSETRON KABI [Suspect]
     Active Substance: ONDANSETRON
     Indication: PREMEDICATION
     Dosage: PRIOR TO EACH CHEMOTHERAPY TREATMENT
     Route: 042
  4. MAGNEROT [Concomitant]
     Active Substance: MAGNESIUM
     Indication: PROPHYLAXIS
     Route: 048
  5. OXALIPLATIN. [Concomitant]
     Active Substance: OXALIPLATIN
     Indication: COLON CANCER
     Route: 042
     Dates: start: 20180216
  6. CALCIUM FOLINATE [Concomitant]
     Active Substance: LEUCOVORIN CALCIUM
     Indication: COLON CANCER
     Dosage: 400MG ON BOTH TREATMENT DAYS OF EACH TREATMENT CYCLE
     Route: 042
     Dates: start: 20180216
  7. FLUOROURACIL. [Suspect]
     Active Substance: FLUOROURACIL
     Dosage: 1200MG OVER 22HRS ON BOTH TREATMENT DAYS OF EACH TREATMENT CYCLE
     Route: 041
     Dates: start: 20180216, end: 20180713
  8. SOLU?MEDROL [Suspect]
     Active Substance: METHYLPREDNISOLONE SODIUM SUCCINATE
     Indication: PREMEDICATION
     Dosage: PRIOR TO EACH CHEMOTHERAPY TREATMENT
     Route: 042

REACTIONS (5)
  - Hypotension [Recovered/Resolved]
  - Feeling hot [Recovered/Resolved]
  - Malaise [Recovered/Resolved]
  - Circulatory collapse [Recovered/Resolved]
  - Generalised erythema [Recovered/Resolved]

NARRATIVE: CASE EVENT DATE: 20180713
